FAERS Safety Report 8551833-1 (Version None)
Quarter: 2012Q3

REPORT INFORMATION
  Report Type: 
  Country: None (occurrence: None)
  Receive Date: 20120730
  Receipt Date: 20120726
  Transmission Date: 20120928
  Serious: Yes (Death, Life-Threatening, Hospitalization, Disabling)
  Sender: FDA-Public Use
  Company Number: BR-B.I. PHARMACEUTICALS,INC./RIDGEFIELD-2012-BR-00849BR

PATIENT
  Sex: Male
  Weight: 56 kg

DRUGS (4)
  1. TAMSULOSIN HYDROCHLORIDE [Suspect]
     Indication: PROSTATIC DISORDER
     Route: 048
     Dates: start: 20110101, end: 20120531
  2. ARADOIS H [Concomitant]
     Indication: HYPERTENSION
  3. PAMELOR [Concomitant]
     Indication: DEPRESSION
  4. SINVASTATINA [Concomitant]
     Indication: BLOOD CHOLESTEROL

REACTIONS (3)
  - RESPIRATORY TRACT INFECTION [None]
  - RESPIRATORY FAILURE [None]
  - HYPERTENSION [None]
